FAERS Safety Report 8569111-3 (Version None)
Quarter: 2012Q3

REPORT INFORMATION
  Report Type: 
  Country: None (occurrence: None)
  Receive Date: 20120803
  Receipt Date: 20120412
  Transmission Date: 20120928
  Serious: No
  Sender: FDA-Public Use
  Company Number: US-ABBOTT-12P-163-0926126-00

PATIENT
  Age: 63 Year
  Sex: Female

DRUGS (4)
  1. NIASPAN [Suspect]
     Indication: HIGH DENSITY LIPOPROTEIN DECREASED
  2. PRAVASTATIN [Concomitant]
     Indication: PRODUCT USED FOR UNKNOWN INDICATION
  3. NIASPAN [Suspect]
     Indication: ILL-DEFINED DISORDER
  4. UNKNOWN MIGRAINE MED [Concomitant]
     Indication: MIGRAINE

REACTIONS (2)
  - OFF LABEL USE [None]
  - HALLUCINATION [None]
